FAERS Safety Report 7832092-1 (Version None)
Quarter: 2011Q4

REPORT INFORMATION
  Report Type: 
  Country: None (occurrence: None)
  Receive Date: 20111022
  Receipt Date: 20111011
  Transmission Date: 20120403
  Serious: Yes (Other)
  Sender: FDA-Public Use
  Company Number: US-BAYER-2011-029613

PATIENT
  Age: 22 Year
  Sex: Female
  Weight: 56.689 kg

DRUGS (5)
  1. DROSPIRENONE AND ETHINYL ESTRADIOL [Suspect]
     Indication: CONTRACEPTION
     Dosage: UNK
     Dates: start: 20090501, end: 20090901
  2. AMBIEN [Concomitant]
     Dosage: UNK
     Dates: start: 20090105
  3. TRAMADOL HCL [Concomitant]
     Dosage: 50 MG, UNK
     Dates: start: 20090105
  4. YAZ [Suspect]
     Indication: CONTRACEPTION
     Dosage: UNK
     Dates: start: 20081001, end: 20090501
  5. IBUPROFEN [Concomitant]

REACTIONS (6)
  - PAIN [None]
  - DYSPEPSIA [None]
  - GALLBLADDER DISORDER [None]
  - EMOTIONAL DISTRESS [None]
  - CHOLECYSTITIS CHRONIC [None]
  - ABDOMINAL PAIN [None]
